FAERS Safety Report 23535670 (Version 4)
Quarter: 2024Q3

REPORT INFORMATION
  Report Type: Report from Study
  Country: US (occurrence: US)
  Receive Date: 20240218
  Receipt Date: 20240917
  Transmission Date: 20241016
  Serious: No
  Sender: ROCHE
  Company Number: US-ROCHE-3510685

PATIENT
  Age: 54 Year
  Sex: Female
  Weight: 81.65 kg

DRUGS (12)
  1. OCREVUS [Suspect]
     Active Substance: OCRELIZUMAB
     Indication: Relapsing multiple sclerosis
     Dosage: DATE OF TREATMENT: 25/AUG/2021, 28/FEB/2022, 06/SEP/2022, 07/MAR/2023, /MAR/2023.
     Route: 042
     Dates: start: 2018
  2. OCREVUS [Suspect]
     Active Substance: OCRELIZUMAB
     Route: 042
     Dates: start: 202309
  3. OCREVUS [Suspect]
     Active Substance: OCRELIZUMAB
     Dosage: DATE OF TREATMENT: 08/FEB/2022, 08/MAR/2024, 25/AUG/2021
     Route: 042
     Dates: start: 20190123
  4. MODAFINIL [Suspect]
     Active Substance: MODAFINIL
     Indication: Fatigue
     Route: 048
     Dates: start: 2007
  5. ZYRTEC [Suspect]
     Active Substance: CETIRIZINE HYDROCHLORIDE
     Indication: Hypersensitivity
     Route: 065
  6. RIZATRIPTAN [Concomitant]
     Active Substance: RIZATRIPTAN
  7. LORAZEPAM [Concomitant]
     Active Substance: LORAZEPAM
  8. ALLEGRA [Concomitant]
     Active Substance: FEXOFENADINE HYDROCHLORIDE
  9. LANSOPRAZOLE [Concomitant]
     Active Substance: LANSOPRAZOLE
  10. FUROSEMIDE [Concomitant]
     Active Substance: FUROSEMIDE
  11. POTASSIUM [Concomitant]
     Active Substance: POTASSIUM
  12. DIVALPROEX SODIUM [Concomitant]
     Active Substance: DIVALPROEX SODIUM

REACTIONS (3)
  - Off label use [Unknown]
  - Blood immunoglobulin G decreased [Unknown]
  - COVID-19 [Recovered/Resolved]

NARRATIVE: CASE EVENT DATE: 20230901
